FAERS Safety Report 8768242 (Version 1)
Quarter: 2012Q4

REPORT INFORMATION
  Report Type: 
  Country: IT (occurrence: IT)
  Receive Date: 20120905
  Receipt Date: 20120905
  Transmission Date: 20130627
  Serious: Yes (Other)
  Sender: FDA-Public Use
  Company Number: IT-GLAXOSMITHKLINE-B0827688A

PATIENT
  Age: 67 Year
  Sex: Female

DRUGS (1)
  1. TYVERB [Suspect]
     Indication: BREAST CANCER METASTATIC
     Dosage: 250MG Five times per day
     Route: 048
     Dates: start: 20110906, end: 20110906

REACTIONS (2)
  - Skin toxicity [Recovered/Resolved]
  - Diarrhoea [Recovered/Resolved]
